FAERS Safety Report 6416250-9 (Version None)
Quarter: 2009Q4

REPORT INFORMATION
  Report Type: 
  Country: None (occurrence: None)
  Receive Date: 20091023
  Receipt Date: 20091012
  Transmission Date: 20100525
  Serious: Yes (Death, Life-Threatening, Hospitalization)
  Sender: FDA-Public Use
  Company Number: 1-20004690

PATIENT
  Sex: Female

DRUGS (4)
  1. DICLOFENAC SODIUM [Suspect]
     Indication: TENDONITIS
     Dosage: 75 MG, ONCE, ORAL
     Route: 048
     Dates: start: 20090904, end: 20090904
  2. VOLTAREN [Suspect]
     Indication: TENDONITIS
     Dosage: ONCE DAILY, TOPICAL
     Route: 061
     Dates: start: 20090701
  3. BENADRYL [Concomitant]
  4. HYDROCODONE [Concomitant]

REACTIONS (20)
  - ANAPHYLACTIC SHOCK [None]
  - ASTHENIA [None]
  - BRONCHOSPASM [None]
  - BURNING SENSATION [None]
  - CHEST DISCOMFORT [None]
  - CORONARY ARTERY DISEASE [None]
  - DRUG INTERACTION [None]
  - DYSPEPSIA [None]
  - DYSPNOEA [None]
  - FLUID RETENTION [None]
  - GENERALISED ERYTHEMA [None]
  - HEAD INJURY [None]
  - IMPAIRED WORK ABILITY [None]
  - INSOMNIA [None]
  - LOSS OF CONSCIOUSNESS [None]
  - MYOCARDIAL INFARCTION [None]
  - PHARYNGEAL OEDEMA [None]
  - PRURITUS [None]
  - RASH [None]
  - RESPIRATORY DISTRESS [None]
